FAERS Safety Report 9193618 (Version 4)
Quarter: 2013Q3

REPORT INFORMATION
  Report Type: Spontaneous
  Country: US (occurrence: US)
  Receive Date: 20130327
  Receipt Date: 20130710
  Transmission Date: 20140515
  Serious: Yes (Death, Life-Threatening, Hospitalization, Disabling, Other)
  Sender: FDA-Public Use
  Company Number: US-GLAXOSMITHKLINE-A1016528A

PATIENT
  Age: 66 Year
  Sex: Female
  Weight: 42 kg

DRUGS (8)
  1. VOTRIENT [Suspect]
     Indication: RENAL CANCER
     Dosage: 800MG PER DAY
     Route: 048
     Dates: start: 20130206, end: 20130315
  2. TYLENOL [Concomitant]
  3. IBUPROFEN [Concomitant]
  4. CALCIUM + VITAMIN D [Concomitant]
  5. MULTIVITAMIN [Concomitant]
  6. VICODIN [Concomitant]
  7. NICOTINE PATCH [Concomitant]
  8. LISINOPRIL [Concomitant]

REACTIONS (13)
  - Cardio-respiratory arrest [Fatal]
  - Shock [Fatal]
  - Multi-organ failure [Fatal]
  - Sepsis [Fatal]
  - Hepatic failure [Recovering/Resolving]
  - Drug-induced liver injury [Unknown]
  - Cholestasis [Unknown]
  - Yellow skin [Unknown]
  - Hepatic enzyme increased [Unknown]
  - Nausea [Unknown]
  - Jaundice [Unknown]
  - Decreased appetite [Unknown]
  - Abdominal pain [Unknown]
